FAERS Safety Report 18836798 (Version 1)
Quarter: 2021Q1

REPORT INFORMATION
  Report Type: Spontaneous
  Country: US (occurrence: US)
  Receive Date: 20210203
  Receipt Date: 20210203
  Transmission Date: 20210419
  Serious: No
  Sender: FDA-Public Use
  Company Number: US-ALLERGAN-2024461US

PATIENT
  Age: 60 Year
  Sex: Female

DRUGS (1)
  1. BOTULINUM TOXIN TYPE A UNK [Suspect]
     Active Substance: BOTULINUM TOXIN TYPE A
     Indication: TORTICOLLIS
     Dosage: 60 UNITS, SINGLE
     Dates: start: 20200611, end: 20200611

REACTIONS (2)
  - Therapeutic product effect incomplete [Unknown]
  - Dysphagia [Unknown]
